FAERS Safety Report 26111527 (Version 1)
Quarter: 2025Q4

REPORT INFORMATION
  Report Type: Spontaneous
  Country: EU (occurrence: EU)
  Receive Date: 20251202
  Receipt Date: 20251202
  Transmission Date: 20260118
  Serious: Yes (Hospitalization, Other)
  Sender: AUROBINDO
  Company Number: EU-AFSSAPS-TO2025001720

PATIENT
  Age: 73 Year
  Sex: Male

DRUGS (4)
  1. IRBESARTAN [Suspect]
     Active Substance: IRBESARTAN
     Indication: Hypertension
     Dosage: 300 MILLIGRAM, ONCE A DAY
     Dates: end: 20250326
  2. KETOPROFEN [Suspect]
     Active Substance: KETOPROFEN
     Indication: Back pain
     Dosage: 1 DOSAGE FORM, ONCE A DAY
     Dates: start: 20250321, end: 20250326
  3. HYDROCHLOROTHIAZIDE [Suspect]
     Active Substance: HYDROCHLOROTHIAZIDE
     Indication: Hypertension
     Dosage: 25 MILLIGRAM, ONCE A DAY
     Dates: end: 20250326
  4. LERCANIDIPINE [Suspect]
     Active Substance: LERCANIDIPINE
     Indication: Hypertension
     Dosage: 10 MILLIGRAM, ONCE A DAY
     Dates: end: 20250326

REACTIONS (1)
  - Acute kidney injury [Recovered/Resolved]

NARRATIVE: CASE EVENT DATE: 20250325
